FAERS Safety Report 7531907-4 (Version None)
Quarter: 2011Q2

REPORT INFORMATION
  Report Type: 
  Country: None (occurrence: None)
  Receive Date: 20110608
  Receipt Date: 20110527
  Transmission Date: 20111010
  Serious: Yes (Other)
  Sender: FDA-Public Use
  Company Number: FI-JNJFOC-20110408953

PATIENT
  Age: 68 Year
  Sex: Female

DRUGS (13)
  1. ADURSAL [Concomitant]
     Route: 065
  2. VAGIFEN [Concomitant]
     Route: 065
  3. LYRICA [Suspect]
     Route: 048
     Dates: start: 20110101, end: 20110401
  4. NEXIUM [Concomitant]
     Route: 065
  5. LYRICA [Suspect]
     Indication: NEURALGIA
     Route: 048
     Dates: start: 20110124
  6. CRESTOR [Concomitant]
     Route: 065
  7. PRIMASPAN [Concomitant]
     Route: 065
  8. TRAMADOL HYDROCHLORIDE [Suspect]
     Route: 065
  9. FLUTICASONE PROPIONATE [Concomitant]
     Route: 065
  10. DINIT [Concomitant]
     Route: 065
  11. TRAMADOL HYDROCHLORIDE [Suspect]
     Indication: CERVICAL SPINAL STENOSIS
     Route: 065
  12. SPESICOR [Concomitant]
     Route: 065
  13. VENTOLIN HFA [Concomitant]
     Route: 065

REACTIONS (6)
  - FEELING ABNORMAL [None]
  - PHOTOPHOBIA [None]
  - EYE HAEMORRHAGE [None]
  - DRY EYE [None]
  - DRUG INEFFECTIVE [None]
  - DIZZINESS [None]
